FAERS Safety Report 19967618 (Version 1)
Quarter: 2021Q4

REPORT INFORMATION
  Report Type: Spontaneous
  Country: US (occurrence: US)
  Receive Date: 20211018
  Receipt Date: 20211018
  Transmission Date: 20220303
  Serious: Yes (Hospitalization)
  Sender: FDA-Public Use
  Company Number: None

PATIENT
  Sex: Male
  Weight: 98.88 kg

DRUGS (15)
  1. MEKTOVI [Suspect]
     Active Substance: BINIMETINIB
     Indication: Malignant melanoma
     Route: 048
  2. ASPIRIN [Concomitant]
     Active Substance: ASPIRIN
  3. FENOFIBRATE [Concomitant]
     Active Substance: FENOFIBRATE
  4. LANTUS SOLOSTAR [Concomitant]
     Active Substance: INSULIN GLARGINE
  5. LEVOTHYROXINE [Concomitant]
     Active Substance: LEVOTHYROXINE
  6. LISINOPRIL [Concomitant]
     Active Substance: LISINOPRIL
  7. LOVAZA [Concomitant]
     Active Substance: OMEGA-3-ACID ETHYL ESTERS
  8. METOPROLOL [Concomitant]
     Active Substance: METOPROLOL
  9. NEORAL [Concomitant]
     Active Substance: CYCLOSPORINE
  10. PRAVASTATIN [Concomitant]
     Active Substance: PRAVASTATIN
  11. REPAGLINIDE [Concomitant]
     Active Substance: REPAGLINIDE
  12. SIROLIMUS [Concomitant]
     Active Substance: SIROLIMUS
  13. TRULICITY [Concomitant]
     Active Substance: DULAGLUTIDE
  14. SULFAMETHOXAZOLE\TRIMETHOPRIM [Concomitant]
     Active Substance: SULFAMETHOXAZOLE\TRIMETHOPRIM
  15. DOXYCYCLINE [Concomitant]
     Active Substance: DOXYCYCLINE

REACTIONS (1)
  - Hospitalisation [None]
